FAERS Safety Report 6841308-X (Version None)
Quarter: 2010Q3

REPORT INFORMATION
  Report Type: 
  Country: None (occurrence: None)
  Receive Date: 20100714
  Receipt Date: 20070803
  Transmission Date: 20110219
  Serious: No
  Sender: FDA-Public Use
  Company Number: US-PFIZER INC-2007055273

PATIENT
  Sex: Male
  Weight: 99.8 kg

DRUGS (2)
  1. CHANTIX [Suspect]
     Indication: SMOKING CESSATION THERAPY
     Route: 048
     Dates: start: 20070628
  2. FLUOXETINE HCL [Interacting]
     Indication: MENTAL DISORDER
     Route: 048

REACTIONS (6)
  - ABDOMINAL DISCOMFORT [None]
  - DIARRHOEA [None]
  - DRUG INTERACTION [None]
  - FATIGUE [None]
  - WITHDRAWAL SYNDROME [None]
  - YAWNING [None]
